FAERS Safety Report 4398768-6 (Version None)
Quarter: 2004Q3

REPORT INFORMATION
  Report Type: 
  Country: None (occurrence: None)
  Receive Date: 20040712
  Receipt Date: 20040618
  Transmission Date: 20050211
  Serious: Yes (Hospitalization, Other)
  Sender: FDA-Public Use
  Company Number: USA040670527

PATIENT
  Age: 49 Year
  Sex: Male
  Weight: 182 kg

DRUGS (1)
  1. HUMALOG [Suspect]
     Dosage: 70 U DAY
     Dates: start: 20031001

REACTIONS (5)
  - BLOOD GLUCOSE INCREASED [None]
  - BRONCHOPNEUMONIA [None]
  - FOOT FRACTURE [None]
  - PULMONARY EMBOLISM [None]
  - TRANSIENT ISCHAEMIC ATTACK [None]
